FAERS Safety Report 5414922-6 (Version None)
Quarter: 2007Q3

REPORT INFORMATION
  Report Type: 
  Country: None (occurrence: None)
  Receive Date: 20070813
  Receipt Date: 20070731
  Transmission Date: 20080115
  Serious: Yes (Hospitalization)
  Sender: FDA-Public Use
  Company Number: 159542ISR

PATIENT
  Age: 41 Year
  Sex: Female

DRUGS (2)
  1. PREDNISOLONE [Suspect]
     Indication: CRYSTAL ARTHROPATHY
     Dosage: 15 MG (15 MG, 1 IN 1 D)
     Dates: start: 20070424, end: 20070509
  2. INDOMETHACIN [Concomitant]

REACTIONS (2)
  - MUSCULAR WEAKNESS [None]
  - TENDON RUPTURE [None]
